FAERS Safety Report 14473929 (Version 1)
Quarter: 2018Q1

REPORT INFORMATION
  Report Type: Spontaneous
  Country: CH (occurrence: CH)
  Receive Date: 20180201
  Receipt Date: 20180201
  Transmission Date: 20180509
  Serious: Yes (Life-Threatening, Other)
  Sender: FDA-Public Use
  Company Number: PHHY2018CH009206

PATIENT
  Age: 76 Year
  Sex: Male

DRUGS (1)
  1. METOPROLOL. [Suspect]
     Active Substance: METOPROLOL
     Indication: ATRIAL FIBRILLATION
     Dosage: 1 MG, (EVERY 5 MINS) TOTAL 3 MG
     Route: 042

REACTIONS (2)
  - Orthopnoea [Recovering/Resolving]
  - Shock [Recovering/Resolving]
